FAERS Safety Report 4868654-3 (Version None)
Quarter: 2005Q4

REPORT INFORMATION
  Report Type: 
  Country: None (occurrence: None)
  Receive Date: 20051223
  Receipt Date: 20051216
  Transmission Date: 20060501
  Serious: Yes (Other)
  Sender: FDA-Public Use
  Company Number: 2005153834

PATIENT
  Sex: Female
  Weight: 68.0396 kg

DRUGS (5)
  1. PROCARDIA XL [Suspect]
     Indication: HYPERTENSION
     Dosage: 30 MG (30 MG, DAILY INTERVAL: EVERY DAY), ORAL
     Route: 048
  2. COZAAR [Concomitant]
  3. FOSAMAX [Concomitant]
  4. ZETIA [Concomitant]
  5. LEXAPRO [Concomitant]

REACTIONS (7)
  - BLOOD GLUCOSE INCREASED [None]
  - BLOOD PRESSURE FLUCTUATION [None]
  - BODY HEIGHT DECREASED [None]
  - DIABETES MELLITUS [None]
  - DIZZINESS [None]
  - HYPOTENSION [None]
  - PHARMACEUTICAL PRODUCT COMPLAINT [None]
